FAERS Safety Report 15733991 (Version 4)
Quarter: 2022Q2

REPORT INFORMATION
  Report Type: Spontaneous
  Country: US (occurrence: US)
  Receive Date: 20181218
  Receipt Date: 20220511
  Transmission Date: 20220721
  Serious: No
  Sender: FDA-Public Use
  Company Number: US-PFIZER INC-2018519262

PATIENT
  Age: 49 Year
  Sex: Female
  Weight: 65.32 kg

DRUGS (2)
  1. DESVENLAFAXINE SUCCINATE [Suspect]
     Active Substance: DESVENLAFAXINE SUCCINATE
     Indication: Bipolar II disorder
     Dosage: 100 MG, DAILY (100 MG/ QTY 30 / DAYS SUPPLY 30)
  2. DESVENLAFAXINE SUCCINATE [Suspect]
     Active Substance: DESVENLAFAXINE SUCCINATE
     Indication: Depression
     Dosage: 100 MG, 1X/DAY
     Dates: start: 20170403

REACTIONS (1)
  - Drug ineffective [Unknown]
